FAERS Safety Report 4832893-8 (Version None)
Quarter: 2005Q4

REPORT INFORMATION
  Report Type: 
  Country: None (occurrence: None)
  Receive Date: 20051121
  Receipt Date: 20051116
  Transmission Date: 20060501
  Serious: Yes (Life-Threatening)
  Sender: FDA-Public Use
  Company Number: GB-GLAXOSMITHKLINE-B0400750A

PATIENT
  Age: 40 Year
  Sex: Female
  Weight: 70 kg

DRUGS (3)
  1. PAROXETINE HCL [Suspect]
     Indication: DEPRESSION
     Dosage: 20MG UNKNOWN
     Route: 048
     Dates: start: 20050915, end: 20051010
  2. AMOXICILLIN [Concomitant]
     Indication: LOWER RESPIRATORY TRACT INFECTION
     Dosage: 500MG PER DAY
     Route: 048
     Dates: start: 20050915, end: 20050921
  3. DEPO-PROVERA [Concomitant]
     Indication: CONTRACEPTION
     Dosage: 150MG PER DAY
     Route: 030
     Dates: start: 20050705

REACTIONS (2)
  - OVERDOSE [None]
  - SUICIDAL IDEATION [None]
